FAERS Safety Report 17386764 (Version 2)
Quarter: 2020Q2

REPORT INFORMATION
  Report Type: Spontaneous
  Country: US (occurrence: US)
  Receive Date: 20200206
  Receipt Date: 20200402
  Transmission Date: 20200713
  Serious: Yes (Death)
  Sender: FDA-Public Use
  Company Number: US-PFIZER INC-2019190980

PATIENT
  Age: 83 Year
  Sex: Male
  Weight: 77.11 kg

DRUGS (1)
  1. LORBRENA [Suspect]
     Active Substance: LORLATINIB
     Indication: LUNG NEOPLASM MALIGNANT
     Dosage: 100 MG, ONCE A DAY
     Route: 048
     Dates: start: 20190301, end: 20200101

REACTIONS (1)
  - Neoplasm progression [Fatal]
